FAERS Safety Report 15107825 (Version 2)
Quarter: 2018Q3

REPORT INFORMATION
  Report Type: Report from Study
  Country: US (occurrence: US)
  Receive Date: 20180704
  Receipt Date: 20180813
  Transmission Date: 20181010
  Serious: Yes (Death, Hospitalization, Other)
  Sender: FDA-Public Use
  Company Number: PHEH2018US026602

PATIENT
  Age: 86 Year
  Sex: Female
  Weight: 73.9 kg

DRUGS (2)
  1. PROMACTA [Suspect]
     Active Substance: ELTROMBOPAG OLAMINE
     Dosage: 50 MG, UNK
     Route: 048
     Dates: start: 20180503
  2. PROMACTA [Suspect]
     Active Substance: ELTROMBOPAG OLAMINE
     Indication: MYELODYSPLASTIC SYNDROME
     Dosage: 75 MG, QD
     Route: 048
     Dates: end: 201804

REACTIONS (14)
  - Speech disorder [Unknown]
  - Platelet count decreased [Unknown]
  - Muscular weakness [Unknown]
  - Mobility decreased [Unknown]
  - Haemoglobin decreased [Unknown]
  - White blood cell count decreased [Unknown]
  - Periorbital haematoma [Unknown]
  - Subdural haematoma [Unknown]
  - Fall [Unknown]
  - Acute myeloid leukaemia [Unknown]
  - Chronic lymphocytic leukaemia [Unknown]
  - Red blood cell count decreased [Unknown]
  - Death [Fatal]
  - Product use in unapproved indication [Unknown]

NARRATIVE: CASE EVENT DATE: 20180506
